FAERS Safety Report 6317643-0 (Version None)
Quarter: 2009Q3

REPORT INFORMATION
  Report Type: 
  Country: None (occurrence: None)
  Receive Date: 20090821
  Receipt Date: 20090811
  Transmission Date: 20100115
  Serious: Yes (Hospitalization)
  Sender: FDA-Public Use
  Company Number: BR-EISAI INC.-E3810-03069-SPO-BR

PATIENT
  Age: 54 Year
  Sex: Male
  Weight: 96 kg

DRUGS (5)
  1. PARIET (RABEPRAZOLE) [Suspect]
     Route: 048
     Dates: start: 20090717
  2. ATENOLOL [Concomitant]
     Indication: ARRHYTHMIA
     Route: 048
     Dates: start: 20000101
  3. ARADOIS [Concomitant]
     Route: 048
     Dates: start: 20080701
  4. CHLOROTHIAZIDE [Concomitant]
     Indication: DIURETIC THERAPY
     Route: 065
     Dates: start: 20080701
  5. LEXOTAN [Concomitant]
     Indication: DEPRESSION
     Route: 048
     Dates: start: 19980101

REACTIONS (3)
  - ACNE [None]
  - CHEST PAIN [None]
  - SWELLING FACE [None]
